FAERS Safety Report 25607246 (Version 2)
Quarter: 2025Q3

REPORT INFORMATION
  Report Type: Spontaneous
  Country: JP (occurrence: JP)
  Receive Date: 20250725
  Receipt Date: 20250905
  Transmission Date: 20251021
  Serious: Yes (Other)
  Sender: AMGEN
  Company Number: JP-KYOWAKIRIN-2025KK014129

PATIENT
  Age: 7 Decade
  Sex: Female

DRUGS (1)
  1. PEGFILGRASTIM [Suspect]
     Active Substance: PEGFILGRASTIM
     Indication: Product used for unknown indication
     Route: 058
     Dates: start: 20250710, end: 20250710

REACTIONS (1)
  - Angina pectoris [Recovering/Resolving]
